FAERS Safety Report 9420242 (Version 1)
Quarter: 2013Q3

REPORT INFORMATION
  Report Type: Spontaneous
  Country: US (occurrence: US)
  Receive Date: 20130725
  Receipt Date: 20130725
  Transmission Date: 20140515
  Serious: No
  Sender: FDA-Public Use
  Company Number: US-PFIZER INC-2013213866

PATIENT
  Sex: Female

DRUGS (1)
  1. NICOTROL INHALER [Suspect]
     Dosage: UNK

REACTIONS (1)
  - Drug ineffective [Unknown]
